FAERS Safety Report 5327924-5 (Version None)
Quarter: 2007Q2

REPORT INFORMATION
  Report Type: 
  Country: None (occurrence: None)
  Receive Date: 20070517
  Receipt Date: 20070510
  Transmission Date: 20071010
  Serious: Yes (Other)
  Sender: FDA-Public Use
  Company Number: TH-BOEHRINGER INGELHEIM PHARMACEUTICALS, INC.-2007-BP-06444BP

PATIENT
  Sex: Female
  Weight: 3 kg

DRUGS (6)
  1. VIRAMUNE [Suspect]
     Indication: VERTICAL INFECTION TRANSMISSION
     Route: 015
     Dates: start: 20070505, end: 20070505
  2. ZIDOVUDINE [Suspect]
     Indication: VERTICAL INFECTION TRANSMISSION
     Route: 015
     Dates: start: 20070505, end: 20070505
  3. DIDANOSINE [Suspect]
     Indication: VERTICAL INFECTION TRANSMISSION
     Route: 015
     Dates: start: 20070505, end: 20070505
  4. AZT [Concomitant]
     Route: 048
  5. VITAMIN K1 [Concomitant]
     Route: 030
  6. AZT [Concomitant]

REACTIONS (2)
  - BLOOD BICARBONATE DECREASED [None]
  - BLOOD CREATININE ABNORMAL [None]
